FAERS Safety Report 20367991 (Version 2)
Quarter: 2022Q1

REPORT INFORMATION
  Report Type: Other
  Country: BR (occurrence: None)
  Receive Date: 20220124
  Receipt Date: 20220211
  Transmission Date: 20220423
  Serious: Yes (Other)
  Sender: FDA-Public Use
  Company Number: BR-ROCHE-3001944

PATIENT
  Age: 49 Year
  Sex: Female

DRUGS (3)
  1. ACTEMRA [Suspect]
     Active Substance: TOCILIZUMAB
     Indication: Rheumatoid arthritis
     Route: 042
  2. ARAVA [Concomitant]
     Active Substance: LEFLUNOMIDE
     Route: 048
  3. TRAZODONE HYDROCHLORIDE [Concomitant]
     Active Substance: TRAZODONE HYDROCHLORIDE
     Route: 048

REACTIONS (1)
  - Hypertensive crisis [Recovered/Resolved]

NARRATIVE: CASE EVENT DATE: 20220112
